FAERS Safety Report 6434011-1 (Version None)
Quarter: 2009Q4

REPORT INFORMATION
  Report Type: 
  Country: None (occurrence: None)
  Receive Date: 20091110
  Receipt Date: 20091102
  Transmission Date: 20100525
  Serious: Yes (Hospitalization)
  Sender: FDA-Public Use
  Company Number: PHHO2009DE13437

PATIENT
  Sex: Male
  Weight: 90 kg

DRUGS (3)
  1. RAD 666 RAD+TAB [Suspect]
     Indication: RENAL TRANSPLANT
     Dosage: 0.5 MG, BID
     Route: 048
  2. SANDIMMUNE [Suspect]
     Dosage: 75 MG, BID
     Route: 048
  3. URBASON [Suspect]
     Indication: RENAL TRANSPLANT
     Dosage: 4 MG, QD
     Route: 048

REACTIONS (2)
  - BLOOD CREATININE INCREASED [None]
  - KIDNEY TRANSPLANT REJECTION [None]
